FAERS Safety Report 6282218-9 (Version None)
Quarter: 2009Q3

REPORT INFORMATION
  Report Type: 
  Country: None (occurrence: None)
  Receive Date: 20090724
  Receipt Date: 20090717
  Transmission Date: 20100115
  Serious: Yes (Other)
  Sender: FDA-Public Use
  Company Number: US-JNJCH-2009019566

PATIENT
  Age: 19 Year
  Sex: Female
  Weight: 68 kg

DRUGS (1)
  1. BENGAY ULTRA STRENGTH [Suspect]
     Indication: MYALGIA
     Dosage: TEXT:^FINGERTIP^ SIZED AMOUNT ONCE
     Route: 061
     Dates: start: 20090717, end: 20090717

REACTIONS (2)
  - APPLICATION SITE BURN [None]
  - APPLICATION SITE ERYTHEMA [None]
